FAERS Safety Report 16974064 (Version 8)
Quarter: 2020Q2

REPORT INFORMATION
  Report Type: Spontaneous
  Country: ES (occurrence: ES)
  Receive Date: 20191030
  Receipt Date: 20200626
  Transmission Date: 20200713
  Serious: Yes (Hospitalization, Other)
  Sender: FDA-Public Use
  Company Number: ES-AUROBINDO-AUR-APL-2019-070244

PATIENT
  Age: 56 Year
  Sex: Female

DRUGS (7)
  1. PARACETAMOL [Suspect]
     Active Substance: ACETAMINOPHEN
     Indication: ABDOMINAL PAIN UPPER
  2. PARACETAMOL [Suspect]
     Active Substance: ACETAMINOPHEN
     Indication: BACK PAIN
     Dosage: 1 GRAM, 3 TIMES A DAY
     Route: 048
  3. TRAMADOL 100 MG [Interacting]
     Active Substance: TRAMADOL
     Indication: BACK PAIN
     Dosage: 100 MILLIGRAM, 3 TIMES A DAY
     Route: 048
  4. TRAMADOL 100 MG [Interacting]
     Active Substance: TRAMADOL
     Indication: ABDOMINAL PAIN UPPER
  5. ACETAMINOPHEN. [Concomitant]
     Active Substance: ACETAMINOPHEN
     Indication: ABDOMINAL PAIN UPPER
     Dosage: 1 GRAM
     Route: 065
  6. MIRTAZAPINE. [Interacting]
     Active Substance: MIRTAZAPINE
     Indication: DEPRESSION
     Dosage: 30 MILLIGRAM, ONCE A DAY, AT NIGHT
     Route: 048
  7. PAROXETINE. [Suspect]
     Active Substance: PAROXETINE
     Indication: DEPRESSION
     Dosage: 20 MILLIGRAM, ONCE A DAY
     Route: 048

REACTIONS (15)
  - Palpitations [Unknown]
  - Hyperreflexia [Unknown]
  - Confusional state [Unknown]
  - Abdominal pain [Recovering/Resolving]
  - Serotonin syndrome [Recovering/Resolving]
  - Hyperhidrosis [Unknown]
  - Diarrhoea [Unknown]
  - Tachycardia [Unknown]
  - Mydriasis [Recovering/Resolving]
  - Pain [Unknown]
  - Delirium [Not Recovered/Not Resolved]
  - Drug interaction [Recovering/Resolving]
  - Nausea [Unknown]
  - Muscle rigidity [Unknown]
  - Clonus [Recovered/Resolved]
